FAERS Safety Report 8154363-4 (Version None)
Quarter: 2012Q1

REPORT INFORMATION
  Report Type: 
  Country: None (occurrence: None)
  Receive Date: 20120221
  Receipt Date: 20120214
  Transmission Date: 20120608
  Serious: Yes (Other)
  Sender: FDA-Public Use
  Company Number: GB-PERRIGO-12GB001189

PATIENT
  Age: 67 Year
  Sex: Male

DRUGS (6)
  1. NAPROXEN [Suspect]
     Indication: PAIN MANAGEMENT
     Dosage: 500 MG, BID
     Route: 048
     Dates: start: 20120106
  2. METFORMIN HCL [Concomitant]
     Indication: DIABETES MELLITUS
     Dosage: 500 MG, UNK
     Route: 048
  3. NOVOMIX [Concomitant]
     Indication: DIABETES MELLITUS
     Route: 058
  4. SIMVASTATIN [Concomitant]
     Indication: HYPERCHOLESTEROLAEMIA
     Dosage: 20 MG, UNK
     Route: 048
  5. VARDENAFIL HYDROCHLORIDE (LEVITRA) [Concomitant]
     Indication: ERECTILE DYSFUNCTION
     Dosage: 20 MG, UNK
     Route: 048
  6. DULOXETIME HYDROCHLORIDE [Concomitant]
     Indication: NEURALGIA
     Dosage: 60 MG, UNK
     Route: 048

REACTIONS (1)
  - HYPOAESTHESIA [None]
